FAERS Safety Report 12798245 (Version 1)
Quarter: 2016Q3

REPORT INFORMATION
  Report Type: Spontaneous
  Country: US (occurrence: US)
  Receive Date: 20160930
  Receipt Date: 20160930
  Transmission Date: 20161109
  Serious: Yes (Death)
  Sender: FDA-Public Use
  Company Number: US-ASTELLAS-2016US038416

PATIENT
  Age: 61 Year
  Sex: Male

DRUGS (1)
  1. TARCEVA [Suspect]
     Active Substance: ERLOTINIB HYDROCHLORIDE
     Indication: CARDIOMYOPATHY
     Route: 048
     Dates: start: 20160714

REACTIONS (1)
  - Central nervous system haemorrhage [Fatal]

NARRATIVE: CASE EVENT DATE: 20160923
